FAERS Safety Report 5923103-9 (Version None)
Quarter: 2008Q4

REPORT INFORMATION
  Report Type: 
  Country: None (occurrence: None)
  Receive Date: 20081018
  Receipt Date: 20081005
  Transmission Date: 20090506
  Serious: Yes (Other)
  Sender: FDA-Public Use
  Company Number: US-PFIZER INC-2008085896

PATIENT
  Age: 37 Year
  Sex: Female
  Weight: 134.7 kg

DRUGS (8)
  1. CHANTIX [Suspect]
     Indication: SMOKING CESSATION THERAPY
     Dates: start: 20081001, end: 20081004
  2. VICODIN [Concomitant]
     Dates: end: 20081001
  3. VALIUM [Concomitant]
     Dates: end: 20081001
  4. ALBUTEROL [Concomitant]
  5. ATROVENT [Concomitant]
  6. ACCOLATE [Concomitant]
  7. NORVASC [Concomitant]
  8. ADVAIR DISKUS 100/50 [Concomitant]

REACTIONS (7)
  - ABNORMAL BEHAVIOUR [None]
  - ABNORMAL DREAMS [None]
  - AGITATION [None]
  - ANGER [None]
  - CONDITION AGGRAVATED [None]
  - INSOMNIA [None]
  - PERSONALITY CHANGE [None]
